FAERS Safety Report 18964936 (Version 1)
Quarter: 2021Q1

REPORT INFORMATION
  Report Type: Spontaneous
  Country: GB (occurrence: GB)
  Receive Date: 20210303
  Receipt Date: 20210303
  Transmission Date: 20210420
  Serious: Yes (Other)
  Sender: FDA-Public Use
  Company Number: NVSC2021GB046984

PATIENT
  Age: 76 Year
  Sex: Female
  Weight: 79 kg

DRUGS (5)
  1. OTOMIZE [Concomitant]
     Indication: EAR DISCOMFORT
     Dosage: 5 ML, QD (ONE SPRAY TO BE USED IN THE AFFECTED EAR)
     Route: 065
     Dates: start: 20210106
  2. LISINOPRIL. [Suspect]
     Active Substance: LISINOPRIL
     Indication: PRODUCT USED FOR UNKNOWN INDICATION
     Dosage: 2.5 MG
     Route: 065
     Dates: start: 20210118
  3. BETNOVATE [Concomitant]
     Active Substance: BETAMETHASONE
     Indication: PRODUCT USED FOR UNKNOWN INDICATION
     Dosage: 60 G, QD (APPLY THINLY)
     Route: 065
     Dates: start: 20201112, end: 20201225
  4. BETNOVATE [Concomitant]
     Active Substance: BETAMETHASONE
     Dosage: 60 MG, QD
     Route: 065
     Dates: start: 20210118
  5. PREDNISOLONE. [Concomitant]
     Active Substance: PREDNISOLONE
     Indication: PRODUCT USED FOR UNKNOWN INDICATION
     Dosage: 30 MG, QD
     Route: 065
     Dates: start: 20210118

REACTIONS (3)
  - Skin burning sensation [Unknown]
  - Skin irritation [Unknown]
  - Skin exfoliation [Unknown]
